FAERS Safety Report 16337047 (Version 1)
Quarter: 2019Q2

REPORT INFORMATION
  Report Type: Spontaneous
  Country: JP (occurrence: JP)
  Receive Date: 20190521
  Receipt Date: 20190521
  Transmission Date: 20190711
  Serious: Yes (Hospitalization)
  Sender: FDA-Public Use
  Company Number: JP-MYLANLABS-2019M1047296

PATIENT
  Age: 83 Year
  Sex: Female

DRUGS (2)
  1. TACROLIMUS. [Suspect]
     Active Substance: TACROLIMUS
     Indication: MYASTHENIA GRAVIS
     Route: 065
  2. PREDNISOLONE. [Suspect]
     Active Substance: PREDNISOLONE
     Indication: MYASTHENIA GRAVIS
     Route: 065

REACTIONS (9)
  - Apraxia [Recovered/Resolved]
  - Meningoencephalitis bacterial [Recovered/Resolved]
  - Cognitive disorder [Recovered/Resolved]
  - Mycobacterium avium complex infection [Recovered/Resolved]
  - Agnosia [Recovered/Resolved]
  - Amnesia [Recovered/Resolved]
  - Epstein-Barr virus infection [Recovered/Resolved]
  - Meningoencephalitis herpetic [Recovered/Resolved]
  - Psychotic disorder [Recovered/Resolved]
